FAERS Safety Report 24973094 (Version 1)
Quarter: 2025Q1

REPORT INFORMATION
  Report Type: Other
  Country: IR (occurrence: IQ)
  Receive Date: 20250216
  Receipt Date: 20250216
  Transmission Date: 20250408
  Serious: Yes (Hospitalization, Other)
  Sender: DEXCEL
  Company Number: IR-DEXPHARM-2025-0923

PATIENT
  Age: 17 Year
  Sex: Male

DRUGS (2)
  1. DEXAMETHASONE [Interacting]
     Active Substance: DEXAMETHASONE
     Route: 050
  2. NEUROBION [Interacting]
     Active Substance: CYANOCOBALAMIN\PYRIDOXINE\THIAMINE

REACTIONS (3)
  - Hypokalaemia [Recovered/Resolved]
  - Paralysis [Recovered/Resolved]
  - Drug interaction [Recovered/Resolved]
